FAERS Safety Report 18737421 (Version 1)
Quarter: 2021Q1

REPORT INFORMATION
  Report Type: Spontaneous
  Country: US (occurrence: US)
  Receive Date: 20210113
  Receipt Date: 20210113
  Transmission Date: 20210419
  Serious: Yes (Other)
  Sender: FDA-Public Use
  Company Number: US-TEVA-2021-US-1867443

PATIENT
  Age: 42 Year
  Sex: Female

DRUGS (3)
  1. MESNA. [Suspect]
     Active Substance: MESNA
     Indication: METAPLASTIC BREAST CARCINOMA
     Dosage: RECEIVED TOTAL FIVE CYCLES
     Route: 065
     Dates: start: 201803, end: 201805
  2. IFOSFAMIDE. [Suspect]
     Active Substance: IFOSFAMIDE
     Indication: METAPLASTIC BREAST CARCINOMA
     Dosage: RECEIVED TOTAL FIVE CYCLES
     Route: 065
     Dates: start: 201803, end: 201805
  3. DOXORUBICIN [Suspect]
     Active Substance: DOXORUBICIN
     Indication: METAPLASTIC BREAST CARCINOMA
     Dosage: RECEIVED TOTAL FIVE CYCLES
     Route: 065
     Dates: start: 201803, end: 201805

REACTIONS (1)
  - Febrile neutropenia [Unknown]

NARRATIVE: CASE EVENT DATE: 2018
